FAERS Safety Report 5592495-5 (Version None)
Quarter: 2008Q1

REPORT INFORMATION
  Report Type: 
  Country: None (occurrence: None)
  Receive Date: 20080115
  Receipt Date: 20080107
  Transmission Date: 20080703
  Serious: Yes (Other)
  Sender: FDA-Public Use
  Company Number: AU-PFIZER INC-2007102644

PATIENT
  Age: 79 Year
  Sex: Male

DRUGS (2)
  1. PRAZOSIN HCL [Suspect]
     Indication: HYPERTENSION
     Route: 048
     Dates: start: 20071130, end: 20071202
  2. INDAPAMIDE [Concomitant]

REACTIONS (2)
  - HALLUCINATION [None]
  - PHOTOPSIA [None]
